FAERS Safety Report 18768507 (Version 1)
Quarter: 2021Q1

REPORT INFORMATION
  Report Type: Spontaneous
  Country: US (occurrence: US)
  Receive Date: 20210121
  Receipt Date: 20210121
  Transmission Date: 20210419
  Serious: Yes (Hospitalization, Other)
  Sender: FDA-Public Use
  Company Number: None

PATIENT
  Age: 69 Year
  Sex: Female
  Weight: 109 kg

DRUGS (2)
  1. RUCAPARIB [Suspect]
     Active Substance: RUCAPARIB
     Indication: OVARIAN CANCER
     Route: 048
     Dates: start: 20210105, end: 20210121
  2. WARFARIN 1 MG [Concomitant]
     Active Substance: WARFARIN

REACTIONS (3)
  - Aphasia [None]
  - Speech disorder [None]
  - Memory impairment [None]

NARRATIVE: CASE EVENT DATE: 20210119
